FAERS Safety Report 10367885 (Version 2)
Quarter: 2014Q4

REPORT INFORMATION
  Report Type: Spontaneous
  Country: US (occurrence: US)
  Receive Date: 20140807
  Receipt Date: 20141003
  Transmission Date: 20150528
  Serious: No
  Sender: FDA-Public Use
  Company Number: US-PFIZER INC-2014220025

PATIENT
  Age: 51 Year
  Sex: Female

DRUGS (27)
  1. VITAMIN B12 [Concomitant]
     Active Substance: CYANOCOBALAMIN
     Dosage: 1 ML, MONTHLY (INJECT 1 MILLILITER IM ONCE A MONTH )
     Route: 030
     Dates: start: 20130228
  2. VITAMIN B12 [Concomitant]
     Active Substance: CYANOCOBALAMIN
     Dosage: 1 ML, MONTHLY (QUANTITY 30 OF 1000 MCG/ML INJECT 1 MILLILITER IM ONCE A MONTH 6 REFILLS)
     Route: 030
     Dates: start: 20131010
  3. REPLESTA [Concomitant]
     Dosage: 50,000 INTL UNITS ORAL WAFER(ONCE A MONTH)
     Dates: start: 20130228
  4. LAMICTAL [Concomitant]
     Active Substance: LAMOTRIGINE
     Dosage: 100 MG, 2X/DAY (QUANTITY 60 OF 100 MG 2 TIMES A DAY)
     Route: 048
     Dates: start: 20140128
  5. MEDROL [Concomitant]
     Active Substance: METHYLPREDNISOLONE
     Dosage: 4 MG, DAILY (QUANTITY 1 OF 4 MG TAKE TABLETS DAILY PER THE SCHEDULE ON THE DOSEPAK)
     Dates: start: 20140530
  6. REPLESTA [Concomitant]
     Dosage: UNK (QUANTITY 3 OF 50,000 INTL UNITS ONCE A MONTH 4 REFILLS)
     Dates: start: 20140128
  7. SOLU-MEDROL [Suspect]
     Active Substance: METHYLPREDNISOLONE SODIUM SUCCINATE
     Indication: MULTIPLE SCLEROSIS
     Dosage: UNK
     Dates: start: 201407
  8. VITAMIN B12 [Concomitant]
     Active Substance: CYANOCOBALAMIN
     Dosage: UNK (QUANTITY 30 OF 1000MCG/ML ONCE A MONTH 1 REFILLS)
     Dates: start: 20130228
  9. REPLESTA [Concomitant]
     Dosage: UNK (QUANTITY 3 OF 50,000 INTL UNITS ONCE A MONTH 4 REFILLS)
     Dates: start: 20130709
  10. REPLESTA [Concomitant]
     Dosage: UNK (QUANTITY 3 OF 50,000 INTL UNITS ONCE A MONTH 4 REFILLS)
     Dates: start: 20131019
  11. MEDROL [Concomitant]
     Active Substance: METHYLPREDNISOLONE
     Dosage: 4 MG, DAILY (QUANTITY 1 OF 4 MG TAKE TABLETS DAILY PER THE SCHEDULE ON THE DOSEPAK)
     Dates: start: 20131029
  12. REPLESTA [Concomitant]
     Dosage: UNK (QUANTITY 3 OF 50,000 INTL UNITS ONCE A MONTH 4 REFILLS)
     Dates: start: 20140530
  13. LAMICTAL [Concomitant]
     Active Substance: LAMOTRIGINE
     Dosage: 100 MG, 2X/DAY (QUANTITY 60 OF 100 MG 2 TIMES A DAY 30 REFILLS)
     Route: 048
     Dates: start: 20130503
  14. LAMICTAL [Concomitant]
     Active Substance: LAMOTRIGINE
     Dosage: 100 MG, 2X/DAY (QUANTITY 60 OF 100 MG ONE PO TWO TIMES A DAY)
     Route: 048
     Dates: start: 20140410
  15. MEDROL [Concomitant]
     Active Substance: METHYLPREDNISOLONE
     Dosage: 4 MG, DAILY (QUANTITY 1 OF 4 MG TAKE TABLETS DAILY PER THE SCHEDULE ON THE DOSEPAK)
     Dates: start: 20140707
  16. VITAMIN B12 [Concomitant]
     Active Substance: CYANOCOBALAMIN
     Dosage: UNK (QUANTITY 30 OF 1000 MCG/ML ONCE A MONTH)
     Dates: start: 20130709
  17. MEDROL [Concomitant]
     Active Substance: METHYLPREDNISOLONE
     Dosage: 4 MG, DAILY (QUANTITY 1 OF 4 MG TAKE TABLETS DAILY PER THE SCHEDULE ON THE DOSEPAK)
     Dates: start: 20130807
  18. SOLU-MEDROL [Suspect]
     Active Substance: METHYLPREDNISOLONE SODIUM SUCCINATE
     Dosage: UNK (EVERY ONE MONTH)
  19. VITAMIN B12 [Concomitant]
     Active Substance: CYANOCOBALAMIN
     Dosage: 1 ML, MONTHLY (QUANTITY 30 OF 1000 MCG/ML INJECT 1 MILLILITER IM ONCE A MONTH 6 REFILLS)
     Dates: start: 20140530
  20. REPLESTA [Concomitant]
     Dosage: UNK (QUANTITY 12 OF 50,000 INTL UNITS ONCE A MONTH NO REFILLS)
     Dates: start: 20130228
  21. LAMICTAL [Concomitant]
     Active Substance: LAMOTRIGINE
     Dosage: 100 MG, 2X/DAY (QUANTITY 60 OF 100 MG TWO PO TWO TIMES A DAY)
     Route: 048
     Dates: start: 20140516
  22. LAMICTAL [Concomitant]
     Active Substance: LAMOTRIGINE
     Dosage: 100 MG, 2X/DAY (TWO PO TWO TIMES A DAY)
     Route: 048
     Dates: start: 20130503
  23. LAMICTAL [Concomitant]
     Active Substance: LAMOTRIGINE
     Dosage: 1.75 MG, 2X/DAY (1.75 MG 2 TIMES A DAY)
  24. MEDROL [Concomitant]
     Active Substance: METHYLPREDNISOLONE
     Dosage: 4 MG, DAILY
     Route: 048
     Dates: start: 20130709
  25. MEDROL [Concomitant]
     Active Substance: METHYLPREDNISOLONE
     Dosage: 4 MG, DAILY (QUANTITY 1 OF 4 MG TAKE TABLETS DAILY PER THE SCHEDULE ON THE DOSEPAK)
     Dates: start: 20140313
  26. SOLU-MEDROL [Suspect]
     Active Substance: METHYLPREDNISOLONE SODIUM SUCCINATE
     Dosage: 1 G, SINGLE (1 GRAM SLOWLY OVER 1 HOUR)
     Route: 042
     Dates: start: 20140804, end: 20140804
  27. VITAMIN B12 [Concomitant]
     Active Substance: CYANOCOBALAMIN
     Dosage: 1 ML, MONTHLY (QUANTITY 30 OF 1000 MCG/ML INJECT 1 MILLILITER IM ONCE A MONTH 6 REFILLS)
     Dates: start: 20140128

REACTIONS (2)
  - Tachycardia [Recovered/Resolved]
  - Heart rate increased [Recovered/Resolved]

NARRATIVE: CASE EVENT DATE: 20140805
